FAERS Safety Report 16070176 (Version 2)
Quarter: 2021Q4

REPORT INFORMATION
  Report Type: Spontaneous
  Country: ES (occurrence: ES)
  Receive Date: 20190314
  Receipt Date: 20211008
  Transmission Date: 20220303
  Serious: Yes (Hospitalization, Other)
  Sender: FDA-Public Use
  Company Number: ES-AEMPS-462551

PATIENT
  Age: 59 Year
  Sex: Female

DRUGS (6)
  1. LEVETIRACETAM [Suspect]
     Active Substance: LEVETIRACETAM
     Indication: Focal dyscognitive seizures
     Dosage: 1 GRAM
     Route: 048
     Dates: start: 20181024, end: 20181125
  2. FOLIC ACID [Concomitant]
     Active Substance: FOLIC ACID
     Indication: Anaemia
     Dosage: 5 MILLIGRAM, 28 TABLETS
     Route: 048
     Dates: start: 20181105
  3. HYDROXOCOBALAMIN\PYRIDOXINE HYDROCHLORIDE\THIAMINE HYDROCHLORIDE [Concomitant]
     Active Substance: HYDROXOCOBALAMIN\PYRIDOXINE HYDROCHLORIDE\THIAMINE HYDROCHLORIDE
     Indication: Vitamin B complex deficiency
     Dosage: UNK, 30 TABLETS
     Route: 048
     Dates: start: 20181024
  4. Magnogene [Concomitant]
     Indication: Hypomagnesaemia
     Dosage: 318 MILLIGRAM, 45 TABLETS
     Route: 048
     Dates: start: 20181029
  5. MIRTAZAPINE [Concomitant]
     Active Substance: MIRTAZAPINE
     Indication: Depression
     Dosage: 30 MILLIGRAM
     Route: 048
     Dates: start: 20180522
  6. QUETIAPINE [Concomitant]
     Active Substance: QUETIAPINE
     Indication: Personality disorder
     Dosage: 100 MILLIGRAM
     Route: 048
     Dates: start: 20180522, end: 20181112

REACTIONS (1)
  - Acute psychosis [Recovered/Resolved]

NARRATIVE: CASE EVENT DATE: 20181107
